FAERS Safety Report 20394681 (Version 1)
Quarter: 2022Q1

REPORT INFORMATION
  Report Type: Spontaneous
  Country: US (occurrence: US)
  Receive Date: 20220129
  Receipt Date: 20220129
  Transmission Date: 20220424
  Serious: No
  Sender: FDA-Public Use
  Company Number: US-TEVA-2022-US-1997097

PATIENT
  Age: 76 Year
  Sex: Female

DRUGS (2)
  1. CLONAZEPAM [Suspect]
     Active Substance: CLONAZEPAM
     Indication: Post herpetic neuralgia
     Route: 065
  2. CLONAZEPAM [Concomitant]
     Active Substance: CLONAZEPAM
     Indication: Post herpetic neuralgia
     Dates: start: 2022

REACTIONS (3)
  - Drug ineffective for unapproved indication [Unknown]
  - Product substitution issue [Unknown]
  - Off label use [Unknown]
